FAERS Safety Report 8983061 (Version 1)
Quarter: 2012Q4

REPORT INFORMATION
  Report Type: Report from Study
  Country: US (occurrence: US)
  Receive Date: 20121223
  Receipt Date: 20121223
  Transmission Date: 20130627
  Serious: Yes (Hospitalization)
  Sender: FDA-Public Use
  Company Number: US-JNJFOC-20121206236

PATIENT
  Age: 62 Year
  Sex: Male
  Weight: 64 kg

DRUGS (14)
  1. DOXORUBICIN HYDROCHLORIDE (DOXIL) [Suspect]
     Indication: MYELOMA RECURRENCE
     Route: 042
     Dates: start: 20100225, end: 20100807
  2. BORTEZOMIB [Suspect]
     Indication: MYELOMA RECURRENCE
     Route: 042
     Dates: start: 20100225, end: 20100518
  3. CYCLOPHOSPHAMIDE [Suspect]
     Indication: MYELOMA RECURRENCE
     Route: 042
     Dates: start: 20100225, end: 20100407
  4. DEXAMETHASONE [Suspect]
     Indication: MYELOMA RECURRENCE
     Route: 048
     Dates: start: 20100225, end: 20100407
  5. ADVAIR [Concomitant]
     Dosage: 250.50ug
     Route: 055
  6. EFFEXOR [Concomitant]
  7. DUONEB [Concomitant]
     Dosage: 3-4 times a day
     Route: 055
  8. LORAZEPAM [Concomitant]
     Indication: ANXIETY
  9. MIRTAZAPINE [Concomitant]
     Route: 048
  10. NEXIUM [Concomitant]
     Route: 048
  11. PROMETHAZINE [Concomitant]
     Route: 048
  12. SPIRIVA [Concomitant]
     Route: 055
  13. THEOPHYLLINE [Concomitant]
  14. VICODIN [Concomitant]

REACTIONS (2)
  - Chronic obstructive pulmonary disease [Recovered/Resolved]
  - Pneumonia [Recovered/Resolved]
